FAERS Safety Report 9478427 (Version 3)
Quarter: 2013Q3

REPORT INFORMATION
  Report Type: Report from Study
  Country: US (occurrence: US)
  Receive Date: 20130827
  Receipt Date: 20130911
  Transmission Date: 20140515
  Serious: Yes (Hospitalization)
  Sender: FDA-Public Use
  Company Number: US-JNJFOC-20130813561

PATIENT
  Age: 11 Year
  Sex: Female
  Weight: 58.06 kg

DRUGS (5)
  1. REMICADE [Suspect]
     Indication: CROHN^S DISEASE
     Route: 042
     Dates: start: 20080101
  2. HUMIRA [Concomitant]
     Indication: CROHN^S DISEASE
     Route: 065
     Dates: start: 20130512
  3. HUMIRA [Concomitant]
     Indication: CROHN^S DISEASE
     Route: 065
     Dates: start: 20100401
  4. MULTIVITAMINS [Concomitant]
     Route: 065
  5. VITAMIN B12 [Concomitant]
     Route: 065

REACTIONS (2)
  - Erysipelas [Recovered/Resolved with Sequelae]
  - Cellulitis [Recovered/Resolved with Sequelae]
